FAERS Safety Report 9207295 (Version 1)
Quarter: 2013Q2

REPORT INFORMATION
  Report Type: Spontaneous
  Country: US (occurrence: US)
  Receive Date: 20130403
  Receipt Date: 20130403
  Transmission Date: 20140414
  Serious: No
  Sender: FDA-Public Use
  Company Number: US-ASTRAZENECA-2013SE18541

PATIENT
  Age: 12 Year
  Sex: Male

DRUGS (3)
  1. PULMICORT FLEXHALER [Suspect]
     Indication: ASTHMA
     Dosage: 1 PUFFS, 1 TIME DAILY
     Route: 055
  2. PULMICORT FLEXHALER [Suspect]
     Indication: ASTHMA
     Dosage: 4 PUFFS, DAILY
     Route: 055
  3. ALBUTEROL [Concomitant]

REACTIONS (3)
  - Viral infection [Unknown]
  - Bronchospasm [Unknown]
  - Off label use [Unknown]
